FAERS Safety Report 7246356-6 (Version None)
Quarter: 2011Q1

REPORT INFORMATION
  Report Type: 
  Country: None (occurrence: None)
  Receive Date: 20110126
  Receipt Date: 20110120
  Transmission Date: 20110831
  Serious: Yes (Hospitalization)
  Sender: FDA-Public Use
  Company Number: HU-PFIZER INC-2011015333

PATIENT
  Age: 66 Year
  Sex: Male
  Weight: 90 kg

DRUGS (25)
  1. ASPIRIN [Concomitant]
     Dosage: UNK
  2. ENALAPRIL MALEATE [Concomitant]
     Dosage: UNK
  3. RETAFYLLIN [Concomitant]
     Dosage: UNK
  4. ATORVASTATIN [Concomitant]
     Dosage: UNK
  5. METFORMIN [Concomitant]
     Dosage: UNK
  6. COAPROVEL [Concomitant]
     Dosage: UNK
  7. MILGAMMA [Concomitant]
     Dosage: UNK
  8. XALATAN [Concomitant]
     Dosage: UNK
  9. MALTOFER [Concomitant]
     Dosage: UNK
  10. CO-RENITEC [Concomitant]
     Dosage: UNK
  11. MILURIT [Concomitant]
     Dosage: UNK
  12. CARVEDILOL [Concomitant]
     Dosage: UNK
  13. TRUSOPT [Concomitant]
     Dosage: UNK
  14. GLICLAZIDE [Concomitant]
     Dosage: UNK
  15. NORVASC [Concomitant]
     Dosage: UNK
  16. BETAHISTINE [Concomitant]
     Dosage: UNK
  17. TRENTAL ^ALBERT-ROUSSEL^ [Concomitant]
     Dosage: UNK
  18. BUDESONIDE [Concomitant]
     Dosage: UNK
  19. SALBUTAMOL [Concomitant]
     Dosage: UNK
  20. TRIMETAZIDINE [Concomitant]
     Dosage: UNK
  21. APO-FAMOTIDINE [Concomitant]
     Dosage: UNK
  22. CONTRAMAL [Concomitant]
     Dosage: UNK
  23. SUTENT [Suspect]
     Indication: METASTATIC RENAL CELL CARCINOMA
     Dosage: UNK
     Route: 048
     Dates: start: 20101028, end: 20110111
  24. NITROMINT [Concomitant]
     Dosage: UNK
  25. TAMSULOSIN [Concomitant]
     Dosage: UNK

REACTIONS (3)
  - DYSPNOEA [None]
  - GASTROOESOPHAGEAL REFLUX DISEASE [None]
  - CHRONIC OBSTRUCTIVE PULMONARY DISEASE [None]
